FAERS Safety Report 13849007 (Version 44)
Quarter: 2020Q4

REPORT INFORMATION
  Report Type: Report from Study
  Country: AU (occurrence: AU)
  Receive Date: 20170809
  Receipt Date: 20201230
  Transmission Date: 20210113
  Serious: Yes (Hospitalization, Other)
  Sender: FDA-Public Use
  Company Number: AU-BIOGEN-2017BI00443654

PATIENT
  Age: 50 Year
  Sex: Female

DRUGS (3)
  1. FAMVIR [Suspect]
     Active Substance: FAMCICLOVIR
     Indication: ORAL HERPES
     Route: 065
  2. TYSABRI [Suspect]
     Active Substance: NATALIZUMAB
     Indication: MULTIPLE SCLEROSIS
     Dosage: INFUSED FOR 1 HOUR
     Route: 050
     Dates: start: 20160905, end: 201910
  3. TYSABRI [Suspect]
     Active Substance: NATALIZUMAB
     Dosage: INFUSED FOR 1 HOUR
     Route: 050
     Dates: start: 20160905

REACTIONS (69)
  - Ovarian cyst [Not Recovered/Not Resolved]
  - Coital bleeding [Not Recovered/Not Resolved]
  - Grief reaction [Not Recovered/Not Resolved]
  - Viral infection [Unknown]
  - Arthralgia [Not Recovered/Not Resolved]
  - Post procedural haemorrhage [Recovered/Resolved]
  - Uterine polyp [Recovered/Resolved]
  - Anaemia [Not Recovered/Not Resolved]
  - Iron deficiency [Not Recovered/Not Resolved]
  - Endometrial thickening [Not Recovered/Not Resolved]
  - Feeling abnormal [Not Recovered/Not Resolved]
  - Speech disorder [Not Recovered/Not Resolved]
  - Multiple sclerosis [Not Recovered/Not Resolved]
  - Metrorrhagia [Recovered/Resolved]
  - Pain in extremity [Not Recovered/Not Resolved]
  - Musculoskeletal discomfort [Not Recovered/Not Resolved]
  - Inflammatory pain [Not Recovered/Not Resolved]
  - Fatigue [Not Recovered/Not Resolved]
  - Pain [Not Recovered/Not Resolved]
  - Tremor [Not Recovered/Not Resolved]
  - Muscle tightness [Not Recovered/Not Resolved]
  - Band sensation [Recovered/Resolved]
  - Joint range of motion decreased [Not Recovered/Not Resolved]
  - Platelet disorder [Not Recovered/Not Resolved]
  - Lower respiratory tract infection [Unknown]
  - Temperature regulation disorder [Not Recovered/Not Resolved]
  - Oral herpes [Not Recovered/Not Resolved]
  - Diabetes mellitus [Unknown]
  - Cough [Not Recovered/Not Resolved]
  - Muscle spasms [Recovered/Resolved]
  - Body temperature increased [Not Recovered/Not Resolved]
  - Dyspnoea [Not Recovered/Not Resolved]
  - Sensory disturbance [Not Recovered/Not Resolved]
  - Scar pain [Not Recovered/Not Resolved]
  - Nasopharyngitis [Recovered/Resolved]
  - Menorrhagia [Recovered/Resolved]
  - Stress [Not Recovered/Not Resolved]
  - Blood cholesterol increased [Not Recovered/Not Resolved]
  - Abdominal pain [Not Recovered/Not Resolved]
  - Panic attack [Unknown]
  - Aphasia [Unknown]
  - Multiple sclerosis relapse [Not Recovered/Not Resolved]
  - Malaise [Not Recovered/Not Resolved]
  - Oxygen saturation decreased [Unknown]
  - Palpitations [Not Recovered/Not Resolved]
  - Lymphocyte count increased [Unknown]
  - Neck pain [Not Recovered/Not Resolved]
  - Viral infection [Not Recovered/Not Resolved]
  - White blood cell count abnormal [Not Recovered/Not Resolved]
  - Tooth disorder [Not Recovered/Not Resolved]
  - Abdominal discomfort [Recovered/Resolved]
  - Abdominal pain upper [Recovered/Resolved]
  - Balance disorder [Not Recovered/Not Resolved]
  - Feeling hot [Not Recovered/Not Resolved]
  - Libido decreased [Not Recovered/Not Resolved]
  - Urinary tract infection [Not Recovered/Not Resolved]
  - Heart rate increased [Not Recovered/Not Resolved]
  - Musculoskeletal stiffness [Not Recovered/Not Resolved]
  - Anxiety [Not Recovered/Not Resolved]
  - Hypoaesthesia [Not Recovered/Not Resolved]
  - Limb discomfort [Not Recovered/Not Resolved]
  - Pneumonia [Not Recovered/Not Resolved]
  - Angiomyolipoma [Not Recovered/Not Resolved]
  - Muscle twitching [Recovered/Resolved]
  - Upper-airway cough syndrome [Not Recovered/Not Resolved]
  - Tinnitus [Not Recovered/Not Resolved]
  - Burning sensation [Not Recovered/Not Resolved]
  - Poor quality sleep [Not Recovered/Not Resolved]
  - Headache [Not Recovered/Not Resolved]

NARRATIVE: CASE EVENT DATE: 20170807
